FAERS Safety Report 18035406 (Version 6)
Quarter: 2022Q4

REPORT INFORMATION
  Report Type: Spontaneous
  Country: CA (occurrence: CA)
  Receive Date: 20200717
  Receipt Date: 20221114
  Transmission Date: 20230113
  Serious: Yes (Other)
  Sender: FDA-Public Use
  Company Number: None

PATIENT
  Age: 52 Year
  Sex: Female
  Weight: 98 kg

DRUGS (35)
  1. CARBOPLATIN [Suspect]
     Active Substance: CARBOPLATIN
     Indication: Metastases to liver
     Dosage: SOLUTION INTRAVENOUS
     Route: 042
  2. CAPECITABINE [Suspect]
     Active Substance: CAPECITABINE
     Indication: Metastases to liver
  3. FLUOROURACIL [Suspect]
     Active Substance: FLUOROURACIL
     Indication: Breast cancer stage II
  4. PACLITAXEL [Suspect]
     Active Substance: PACLITAXEL
     Indication: Metastases to liver
     Dosage: LIQUID INTRAVENOUS
     Route: 042
  5. LETROZOLE [Suspect]
     Active Substance: LETROZOLE
     Indication: Metastases to liver
  6. XELODA [Suspect]
     Active Substance: CAPECITABINE
     Indication: Metastases to liver
     Route: 048
  7. TAXOL [Suspect]
     Active Substance: PACLITAXEL
     Indication: Metastases to liver
     Dosage: SOLUTION INTRAVENOUS
     Route: 042
  8. AFINITOR [Suspect]
     Active Substance: EVEROLIMUS
     Indication: Metastases to liver
  9. CYCLOPHOSPHAMIDE [Suspect]
     Active Substance: CYCLOPHOSPHAMIDE
     Indication: Breast cancer stage II
  10. EXEMESTANE [Suspect]
     Active Substance: EXEMESTANE
     Indication: Metastases to liver
  11. EPIRUBICIN HYDROCHLORIDE [Suspect]
     Active Substance: EPIRUBICIN HYDROCHLORIDE
     Indication: Breast cancer stage II
     Dosage: SOLUTION INTRAVENOUS
     Route: 042
  12. TAMOXIFEN CITRATE [Suspect]
     Active Substance: TAMOXIFEN CITRATE
     Indication: Metastases to liver
     Route: 048
  13. CYCLOPHOSPHAMIDE [Suspect]
     Active Substance: CYCLOPHOSPHAMIDE
     Indication: Breast cancer stage II
     Dosage: POWDER FOR SOLUTION
     Route: 042
  14. TAXOTERE [Suspect]
     Active Substance: DOCETAXEL
     Indication: Metastases to liver
     Dosage: SOLUTION INTRAVENOUS
     Route: 042
  15. ACETAMINOPHEN [Concomitant]
     Active Substance: ACETAMINOPHEN
     Dosage: 1 EVERY 1 DAYS
     Route: 048
  16. CANNABIDIOL [Concomitant]
     Active Substance: CANNABIDIOL
     Dosage: 1 EVERY 1 DAYS
     Route: 048
  17. HYDROCHLOROTHIAZIDE [Concomitant]
     Active Substance: HYDROCHLOROTHIAZIDE
     Dosage: 1 EVERY 1 DAYS
     Route: 048
  18. HYDROMORPHONE [Concomitant]
     Active Substance: HYDROMORPHONE
     Dosage: 1 EVERY 1 DAY
     Route: 048
  19. MAGNESIUM [Concomitant]
     Active Substance: MAGNESIUM
     Dosage: 1 EVERY 1 DAYS
     Route: 048
  20. OLMESARTAN MEDOXOMIL [Concomitant]
     Active Substance: OLMESARTAN MEDOXOMIL
     Route: 048
  21. RIVAROXABAN [Concomitant]
     Active Substance: RIVAROXABAN
     Dosage: 1 EVERY 1 DAYS
     Route: 048
  22. TYLENOL WITH CODEINE [Concomitant]
     Active Substance: ACETAMINOPHEN\CODEINE PHOSPHATE
  23. ACETAMINOPHEN AND CODEINE [Concomitant]
     Active Substance: ACETAMINOPHEN\CODEINE PHOSPHATE
     Dosage: 1 EVERY 1 DAYS
     Route: 048
  24. TYLENOL [Concomitant]
     Active Substance: ACETAMINOPHEN
  25. EXEMESTANE [Suspect]
     Active Substance: EXEMESTANE
  26. EXEMESTANE [Suspect]
     Active Substance: EXEMESTANE
     Route: 065
  27. EXEMESTANE [Suspect]
     Active Substance: EXEMESTANE
  28. LETROZOLE [Suspect]
     Active Substance: LETROZOLE
  29. TAXOTERE [Suspect]
     Active Substance: DOCETAXEL
     Dosage: SOLUTION INTRAVENOUS
     Route: 042
  30. HYDROCHLOROTHIAZIDE [Concomitant]
     Active Substance: HYDROCHLOROTHIAZIDE
     Dosage: 1 EVERY 1 DAYS
     Route: 048
  31. MAGNESIUM [Concomitant]
     Active Substance: MAGNESIUM
     Dosage: 1 EVERY 1 DAYS
     Route: 048
  32. TAMOXIFEN CITRATE [Suspect]
     Active Substance: TAMOXIFEN CITRATE
     Route: 048
  33. ACETAMINOPHEN [Concomitant]
     Active Substance: ACETAMINOPHEN
     Dosage: 1 EVERY 1 DAYS
     Route: 048
  34. RIVAROXABAN [Concomitant]
     Active Substance: RIVAROXABAN
     Dosage: 1 EVERY 1 DAYS
     Route: 048
  35. CARBOPLATIN [Suspect]
     Active Substance: CARBOPLATIN
     Indication: Metastases to liver
     Route: 042

REACTIONS (18)
  - Breast cancer metastatic [Unknown]
  - Chest pain [Unknown]
  - Device related thrombosis [Unknown]
  - Diarrhoea [Unknown]
  - Drug hypersensitivity [Unknown]
  - Drug ineffective [Unknown]
  - Heart rate irregular [Unknown]
  - Metastases to bone [Unknown]
  - Metastases to liver [Unknown]
  - Nail disorder [Unknown]
  - Nausea [Unknown]
  - Neuropathy peripheral [Unknown]
  - Paraesthesia [Unknown]
  - Rash [Unknown]
  - Skin exfoliation [Unknown]
  - Vomiting [Unknown]
  - Asthma [Unknown]
  - Neoplasm progression [Unknown]
